FAERS Safety Report 23507359 (Version 1)
Quarter: 2024Q1

REPORT INFORMATION
  Report Type: Spontaneous
  Country: AU (occurrence: AU)
  Receive Date: 20240209
  Receipt Date: 20240209
  Transmission Date: 20240410
  Serious: Yes (Other)
  Sender: FDA-Public Use
  Company Number: AU-BAXTER-2024BAX012254

PATIENT
  Sex: Male

DRUGS (3)
  1. SODIUM CHLORIDE [Suspect]
     Active Substance: SODIUM CHLORIDE
     Indication: Medication dilution
     Dosage: 0.2 ML AT AN UNSPECIFIED FREQUENCY, USED TO DILUTE 2 MG OF CEFAZOLIN
     Route: 065
  2. WATER FOR INJECTION [Suspect]
     Active Substance: WATER
     Indication: Medication dilution
     Dosage: UNK
     Route: 065
  3. CEFAZOLIN [Suspect]
     Active Substance: CEFAZOLIN
     Dosage: 2 MG AT AN UNSPECIFIED FREQUENCY, DILUTED IN 0.2 ML SODIUM CHLORIDE
     Route: 065

REACTIONS (1)
  - Blindness [Unknown]
